FAERS Safety Report 5271431-5 (Version None)
Quarter: 2007Q1

REPORT INFORMATION
  Report Type: 
  Country: None (occurrence: None)
  Receive Date: 20061214
  Receipt Date: 20060810
  Transmission Date: 20070707
  Serious: Yes (Hospitalization, Other)
  Sender: FDA-Public Use
  Company Number: 2005062457

PATIENT
  Age: 48 Year
  Sex: Female

DRUGS (5)
  1. BEXTRA [Suspect]
     Dosage: 10 MG (10 MG,1 IN 1 D),ORAL
     Route: 048
  2. SYNTHROID [Concomitant]
  3. PREMARIN [Concomitant]
  4. METHOTREXATE [Concomitant]
  5. ETANERCEPT (ETANERCEPT) [Concomitant]

REACTIONS (1)
  - ACUTE MYOCARDIAL INFARCTION [None]
